FAERS Safety Report 5179879-4 (Version None)
Quarter: 2006Q4

REPORT INFORMATION
  Report Type: 
  Country: None (occurrence: None)
  Receive Date: 20061211
  Receipt Date: 20061128
  Transmission Date: 20070319
  Serious: Yes (Other)
  Sender: FDA-Public Use
  Company Number: 2006125848

PATIENT
  Age: 65 Year
  Sex: Female

DRUGS (4)
  1. CABERGOLINE [Suspect]
     Indication: PARKINSON'S DISEASE
     Dosage: 2 MG (2 MG, 1 IN 1 D), ORAL
     Route: 048
     Dates: start: 20060703, end: 20061011
  2. LIPITOR [Suspect]
     Dosage: ORAL
     Route: 048
  3. ALPRAZOLAM [Concomitant]
  4. HALCION [Concomitant]

REACTIONS (3)
  - GAIT DISTURBANCE [None]
  - HALLUCINATION [None]
  - TREMOR [None]
